FAERS Safety Report 4511384-8 (Version None)
Quarter: 2004Q4

REPORT INFORMATION
  Report Type: 
  Country: None (occurrence: None)
  Receive Date: 20041123
  Receipt Date: 20041123
  Transmission Date: 20050328
  Serious: Yes (Hospitalization)
  Sender: FDA-Public Use
  Company Number: None

PATIENT
  Age: 61 Year
  Sex: Male

DRUGS (19)
  1. TECHNETIUM TC 99M MPI MDP [Suspect]
     Indication: BONE SCAN
     Dates: start: 20040606, end: 20040606
  2. TECHNETIUM TC 99M MPI MDP [Suspect]
     Indication: METASTASIS
     Dates: start: 20040606, end: 20040606
  3. ASPIRIN [Concomitant]
  4. ATORVASTATIN [Concomitant]
  5. BENAZEPRIL HCL [Concomitant]
  6. BRIMONIDINE [Concomitant]
  7. BUSPIRONE [Concomitant]
  8. DILTIAZEM CD [Concomitant]
  9. COLACE [Concomitant]
  10. FLUTICASONE PROPIONATE [Concomitant]
  11. FUROSEMIDE [Concomitant]
  12. LANTUS [Concomitant]
  13. IPRATROPIUM BROMIDE [Concomitant]
  14. MS CONTIN [Concomitant]
  15. MORPHINE [Concomitant]
  16. NITROGLYCERIN [Concomitant]
  17. SALMETEROL INHALER [Concomitant]
  18. SERTRALINE HCL [Concomitant]
  19. TIMOLOL MALEATE [Concomitant]

REACTIONS (3)
  - ASTHENIA [None]
  - CONTRAST MEDIA REACTION [None]
  - RENAL FAILURE ACUTE [None]
